FAERS Safety Report 6348260-4 (Version None)
Quarter: 2009Q3

REPORT INFORMATION
  Report Type: 
  Country: None (occurrence: None)
  Receive Date: 20090908
  Receipt Date: 20090824
  Transmission Date: 20100115
  Serious: Yes (Other)
  Sender: FDA-Public Use
  Company Number: 2009AL005604

PATIENT
  Age: 40 Year
  Sex: Male

DRUGS (9)
  1. MIRTAZAPINE [Suspect]
  2. RISPERIDONE [Concomitant]
  3. ABILIFY [Concomitant]
  4. QUETIAPINE [Concomitant]
  5. VALPROIC ACID [Concomitant]
  6. DULOXETINE HYDROCHLORIDE [Concomitant]
  7. EFFEXOR [Concomitant]
  8. LITHIUM CARBONATE [Concomitant]
  9. DRUG USED IN DIABETES [Concomitant]

REACTIONS (4)
  - HYPOTHYROIDISM [None]
  - LIVER FUNCTION TEST ABNORMAL [None]
  - METABOLIC SYNDROME [None]
  - PSYCHOTIC DISORDER [None]
